FAERS Safety Report 10102303 (Version 2)
Quarter: 2014Q2

REPORT INFORMATION
  Report Type: Spontaneous
  Country: AR (occurrence: AR)
  Receive Date: 20140424
  Receipt Date: 20140505
  Transmission Date: 20141212
  Serious: Yes (Other)
  Sender: FDA-Public Use
  Company Number: PHHY2014AR049514

PATIENT
  Sex: Female

DRUGS (1)
  1. GENTEAL [Suspect]
     Indication: KERATITIS
     Dosage: PRN (ACCORDING TO DRYNESS) / AS OFTEN AS SHE NEEDED ON THE DAY

REACTIONS (1)
  - Cataract [Recovered/Resolved]
